FAERS Safety Report 4412558-7 (Version None)
Quarter: 2004Q2

REPORT INFORMATION
  Report Type: 
  Country: None (occurrence: None)
  Receive Date: 20040630
  Receipt Date: 20040407
  Transmission Date: 20050107
  Serious: No
  Sender: FDA-Public Use
  Company Number: 04P-163-0257031-00

PATIENT
  Age: 75 Year
  Sex: Female
  Weight: 63.5036 kg

DRUGS (7)
  1. HUMIRA [Suspect]
     Indication: RHEUMATOID ARTHRITIS
     Dosage: 40 MG, 1 IN 2 WK, SUBCUTANEOUS
     Route: 058
     Dates: start: 20031201
  2. BUCINDOLOL HYDROCHLORIDE [Concomitant]
  3. CONJUGATED ESTROGEN [Concomitant]
  4. METHOTREXATE [Concomitant]
  5. LEUCOVOR [Concomitant]
  6. PREDNISONE [Concomitant]
  7. GLUCOSAMINE W/CHONDROITIN SULFATES [Concomitant]

REACTIONS (1)
  - BACK PAIN [None]
